FAERS Safety Report 7806434-7 (Version None)
Quarter: 2011Q4

REPORT INFORMATION
  Report Type: 
  Country: None (occurrence: None)
  Receive Date: 20111011
  Receipt Date: 20111007
  Transmission Date: 20120403
  Serious: Yes (Hospitalization)
  Sender: FDA-Public Use
  Company Number: US-BRISTOL-MYERS SQUIBB COMPANY-16082117

PATIENT
  Age: 75 Year
  Sex: Male
  Weight: 83 kg

DRUGS (8)
  1. CARVEDILOL [Concomitant]
     Indication: PAIN
     Dates: start: 20110829
  2. MULTI-VITAMIN [Concomitant]
     Indication: DECREASED APPETITE
     Dates: start: 20090308
  3. CARBOPLATIN [Suspect]
     Indication: NON-SMALL CELL LUNG CANCER
     Dosage: 1DF IS 6AUC LAST DOSE ON 29AUG2011.
     Route: 042
     Dates: start: 20110627, end: 20110922
  4. BEVACIZUMAB [Suspect]
     Indication: NON-SMALL CELL LUNG CANCER
     Dosage: LAST DOSE ON 29AUG2011.
     Route: 042
     Dates: start: 20110627, end: 20110922
  5. DURAGESIC-100 [Concomitant]
     Indication: PAIN
     Dates: start: 20110902
  6. PACLITAXEL [Suspect]
     Indication: NON-SMALL CELL LUNG CANCER
     Dosage: LAST DOSE ON 29AUG2011.
     Route: 042
     Dates: start: 20110627, end: 20110922
  7. ASPIRIN [Concomitant]
     Indication: PAIN
     Dates: start: 20090308
  8. MEGESTROL ACETATE [Concomitant]
     Indication: DECREASED APPETITE
     Dates: start: 20110830, end: 20110927

REACTIONS (3)
  - MENTAL STATUS CHANGES [None]
  - FAILURE TO THRIVE [None]
  - MUSCULAR WEAKNESS [None]
